FAERS Safety Report 12420962 (Version 2)
Quarter: 2016Q2

REPORT INFORMATION
  Report Type: Report from Study
  Country: US (occurrence: US)
  Receive Date: 20160531
  Receipt Date: 20160613
  Transmission Date: 20160815
  Serious: Yes (Death, Other)
  Sender: FDA-Public Use
  Company Number: US-GILEAD-2016-0215938

PATIENT
  Age: 70 Year
  Sex: Female

DRUGS (13)
  1. AMBRISENTAN [Suspect]
     Active Substance: AMBRISENTAN
     Indication: PULMONARY HYPERTENSION
     Dosage: 5 MG, QD
     Route: 065
  2. POTASSIUM [Concomitant]
     Active Substance: POTASSIUM
  3. NEURONTIN [Concomitant]
     Active Substance: GABAPENTIN
  4. CELEBREX [Concomitant]
     Active Substance: CELECOXIB
  5. PROZAC [Concomitant]
     Active Substance: FLUOXETINE HYDROCHLORIDE
  6. CLARINEX                           /01202601/ [Concomitant]
     Active Substance: LORATADINE\PSEUDOEPHEDRINE SULFATE
  7. TORSEMIDE. [Concomitant]
     Active Substance: TORSEMIDE
  8. WELCHOL [Concomitant]
     Active Substance: COLESEVELAM HYDROCHLORIDE
  9. PRILOSEC [Concomitant]
     Active Substance: OMEPRAZOLE MAGNESIUM
  10. REMODULIN [Concomitant]
     Active Substance: TREPROSTINIL
  11. BUSPAR [Concomitant]
     Active Substance: BUSPIRONE HYDROCHLORIDE
  12. AMBIEN CR [Concomitant]
     Active Substance: ZOLPIDEM TARTRATE
  13. ADCIRCA [Concomitant]
     Active Substance: TADALAFIL

REACTIONS (2)
  - Acute respiratory failure [Fatal]
  - Urosepsis [Fatal]

NARRATIVE: CASE EVENT DATE: 20160525
